FAERS Safety Report 6793248-2 (Version None)
Quarter: 2010Q2

REPORT INFORMATION
  Report Type: 
  Country: None (occurrence: None)
  Receive Date: 20100624
  Receipt Date: 20091023
  Transmission Date: 20101027
  Serious: No
  Sender: FDA-Public Use
  Company Number: US-MYLANLABS-2009S1017012

PATIENT
  Age: 34 Year
  Sex: Female
  Weight: 121.56 kg

DRUGS (12)
  1. CLOZAPINE [Suspect]
     Indication: SCHIZOAFFECTIVE DISORDER
     Route: 048
     Dates: start: 20070904
  2. CLOZAPINE [Suspect]
     Route: 048
     Dates: start: 20070904
  3. ZYPREXA [Concomitant]
     Dosage: BEING TAPERED
  4. VITAMIN C [Concomitant]
  5. CENTRUM SILVER [Concomitant]
  6. FISH OIL [Concomitant]
  7. DEPAKOTE ER [Concomitant]
  8. ALBUTEROL SULFATE [Concomitant]
  9. MILK THISTLE [Concomitant]
  10. YAZ [Concomitant]
  11. INDERAL [Concomitant]
  12. RANTIDINE [Concomitant]

REACTIONS (1)
  - ANTIPSYCHOTIC DRUG LEVEL INCREASED [None]
